FAERS Safety Report 6372100-0 (Version None)
Quarter: 2009Q3

REPORT INFORMATION
  Report Type: 
  Country: None (occurrence: None)
  Receive Date: 20090917
  Receipt Date: 20090904
  Transmission Date: 20100115
  Serious: Yes (Other)
  Sender: FDA-Public Use
  Company Number: ADR18992009

PATIENT
  Sex: Male

DRUGS (1)
  1. SALBUTAMOL (MFR: UNKNOWN) [Suspect]

REACTIONS (3)
  - DRUG ADMINISTERED AT INAPPROPRIATE SITE [None]
  - INTENTIONAL DRUG MISUSE [None]
  - THERMAL BURN [None]
